FAERS Safety Report 16291380 (Version 2)
Quarter: 2020Q4

REPORT INFORMATION
  Report Type: Report from Study
  Country: US (occurrence: US)
  Receive Date: 20190509
  Receipt Date: 20201124
  Transmission Date: 20210113
  Serious: Yes (Other)
  Sender: FDA-Public Use
  Company Number: US-JNJFOC-20190502237

PATIENT
  Age: 5 Decade
  Sex: Male

DRUGS (6)
  1. AZATHIOPRINE. [Concomitant]
     Active Substance: AZATHIOPRINE
     Route: 065
     Dates: start: 2010
  2. LIALDA [Concomitant]
     Active Substance: MESALAMINE
     Route: 065
  3. VITAMIN D [Concomitant]
     Active Substance: VITAMIN D NOS
     Route: 065
  4. LUTEIN [Concomitant]
     Active Substance: LUTEIN
     Route: 065
  5. REMICADE [Suspect]
     Active Substance: INFLIXIMAB
     Indication: PRODUCT USED FOR UNKNOWN INDICATION
     Route: 042
     Dates: start: 201312
  6. CENTRUM [Concomitant]
     Active Substance: VITAMINS
     Route: 065

REACTIONS (1)
  - Cytomegalovirus infection [Recovered/Resolved]
